FAERS Safety Report 5637214-9 (Version None)
Quarter: 2008Q1

REPORT INFORMATION
  Report Type: 
  Country: None (occurrence: None)
  Receive Date: 20080225
  Receipt Date: 20080220
  Transmission Date: 20080703
  Serious: Yes (Life-Threatening, Hospitalization)
  Sender: FDA-Public Use
  Company Number: DE-AVENTIS-200810483DE

PATIENT
  Age: 77 Year
  Sex: Male

DRUGS (27)
  1. ENOXAPARIN SODIUM [Suspect]
     Indication: THROMBOSIS PROPHYLAXIS
     Dosage: DOSE: 1-0-0, 1-0-1
     Route: 058
     Dates: start: 20040728, end: 20040806
  2. URBASON [Suspect]
     Indication: CHRONIC OBSTRUCTIVE PULMONARY DISEASE
     Dosage: DOSE: 60MG, 16MG, 40MG
     Route: 048
     Dates: start: 20040708, end: 20040805
  3. NORVASC [Suspect]
     Indication: HYPERTENSION
     Route: 048
     Dates: start: 20040717, end: 20040809
  4. LISINOPRIL AND HYDROCHLOROTHIAZIDE [Suspect]
     Indication: HYPERTENSION
     Dosage: DOSE: 1-0-0
     Route: 048
     Dates: start: 20040717, end: 20040809
  5. NEBILET [Suspect]
     Indication: TACHYCARDIA
     Dosage: DOSE: 5MG, 1-0-0, 1-0-1
     Route: 048
     Dates: start: 20040614, end: 20040814
  6. LOPIRIN [Suspect]
     Indication: HYPERTENSION
     Dosage: DOSE: 25MG, 1-0-1, 1-0-0
     Route: 048
     Dates: start: 20040614, end: 20040814
  7. PULMICORT [Suspect]
     Indication: CHRONIC OBSTRUCTIVE PULMONARY DISEASE
     Dosage: DOSE: 2X1 PUFF
     Route: 055
     Dates: start: 20040617, end: 20040814
  8. PANTOZOL                           /01263202/ [Suspect]
     Dosage: DOSE: 80MG, 20MG
     Route: 048
     Dates: start: 20040708, end: 20040814
  9. ASPIRIN [Suspect]
     Indication: THROMBOSIS PROPHYLAXIS
     Route: 048
     Dates: start: 20040617, end: 20040814
  10. FORADIL [Suspect]
     Indication: CHRONIC OBSTRUCTIVE PULMONARY DISEASE
     Dosage: DOSE: 2X1 PUFF
     Route: 055
     Dates: start: 20040726, end: 20040814
  11. ACC BRAUSE [Suspect]
     Route: 048
     Dates: start: 20040728, end: 20040814
  12. PARACODIN TROPFEN [Suspect]
     Indication: COUGH
     Route: 048
     Dates: start: 20040729, end: 20040807
  13. TORSEMIDE [Suspect]
     Dosage: DOSE: 10MG, 1-0-0, 1/2-0-0
     Route: 048
     Dates: start: 20040730, end: 20040809
  14. DICODID                            /00060002/ [Suspect]
     Indication: CHRONIC OBSTRUCTIVE PULMONARY DISEASE
     Dosage: DOSE: 1/2 AMPOULE
     Route: 058
     Dates: start: 20040803, end: 20040803
  15. CEPHORAL [Suspect]
     Indication: CHRONIC OBSTRUCTIVE PULMONARY DISEASE
     Route: 048
     Dates: start: 20040803, end: 20040814
  16. BERODUAL DOSIER-AEROSOL [Concomitant]
     Indication: CHRONIC OBSTRUCTIVE PULMONARY DISEASE
     Dosage: DOSE: 2X2 PUFFS
     Route: 055
     Dates: start: 20040717, end: 20040725
  17. TRAMAL [Concomitant]
     Indication: PAIN
     Route: 048
     Dates: start: 20040728, end: 20040728
  18. POTASSIUM CHLORIDE [Concomitant]
     Dosage: DOSE: 2-2-2
     Route: 048
     Dates: start: 20040804, end: 20040809
  19. ALDACTONE [Concomitant]
     Route: 048
     Dates: start: 20040806, end: 20040809
  20. AMLODIPINE [Concomitant]
     Indication: HYPERTENSION
     Dosage: DOSE: NOT REPORTED
     Route: 048
     Dates: start: 20040810, end: 20040814
  21. ATROVENT [Concomitant]
     Indication: CHRONIC OBSTRUCTIVE PULMONARY DISEASE
     Dosage: DOSE: NOT REPORTED
     Route: 055
     Dates: start: 20040810, end: 20040814
  22. BRONCHO INHALAT SOLUTION SALBUTAMOLSULFAT [Concomitant]
     Indication: CHRONIC OBSTRUCTIVE PULMONARY DISEASE
     Route: 055
     Dates: start: 20040810, end: 20040814
  23. TORSEMIDE [Concomitant]
     Route: 048
     Dates: start: 20040810, end: 20040814
  24. SPIRONOLACTONE [Concomitant]
     Route: 048
     Dates: start: 20040810, end: 20040814
  25. LISIPLUS [Concomitant]
     Indication: HYPERTENSION
     Dosage: DOSE: 20MG/12.5MG
     Route: 048
     Dates: start: 20040810, end: 20070814
  26. KALITRANS                          /00242801/ [Concomitant]
     Dosage: DOSE: 2-0-2
     Route: 048
     Dates: start: 20040810
  27. CEFTRIAXON [Concomitant]
     Route: 042
     Dates: start: 20040815, end: 20040815

REACTIONS (6)
  - BLISTER [None]
  - LIP EROSION [None]
  - NIKOLSKY'S SIGN [None]
  - PRURITUS [None]
  - RASH MACULAR [None]
  - TOXIC EPIDERMAL NECROLYSIS [None]
